FAERS Safety Report 10369119 (Version 1)
Quarter: 2014Q1

REPORT INFORMATION
  Report Type: Spontaneous
  Country: US (occurrence: None)
  Receive Date: 20140306
  Receipt Date: 20140306
  Transmission Date: 20141002
  Serious: Yes (Other)
  Sender: FDA-Public Use
  Company Number: 163-21880-13033029

PATIENT
  Age: 79 Year
  Sex: Male
  Weight: 79.38 kg

DRUGS (5)
  1. REVLIMID (LENALIDOMIDE) (25 MILLIGRAM, CAPSULES) [Suspect]
     Indication: PLASMA CELL MYELOMA
     Dosage: 25 MG, 21 IN 28 D , PO 12/28/2012 - UNKNOWN THERAPY DATES
     Route: 048
     Dates: start: 20121228
  2. DEXAMETHASONE [Concomitant]
  3. SIMVASTATIN [Concomitant]
  4. TAMSULOSIN HCL [Concomitant]
  5. WARFARIN SODIUM [Concomitant]

REACTIONS (2)
  - Thrombosis [None]
  - Paraesthesia [None]
